FAERS Safety Report 5292635-1 (Version None)
Quarter: 2007Q2

REPORT INFORMATION
  Report Type: 
  Country: None (occurrence: None)
  Receive Date: 20070404
  Receipt Date: 20070326
  Transmission Date: 20071010
  Serious: Yes (Other)
  Sender: FDA-Public Use
  Company Number: CAR-2007-005

PATIENT
  Age: 62 Year
  Sex: Female

DRUGS (2)
  1. SUCRALFATE [Suspect]
     Indication: DUODENAL ULCER
     Dosage: 1G TID
     Dates: start: 19961221, end: 19970101
  2. SUCRALFATE [Suspect]
     Indication: OESOPHAGITIS
     Dosage: 1G TID
     Dates: start: 19961221, end: 19970101

REACTIONS (7)
  - ALANINE AMINOTRANSFERASE INCREASED [None]
  - ASPARTATE AMINOTRANSFERASE INCREASED [None]
  - BLOOD ALKALINE PHOSPHATASE INCREASED [None]
  - GAMMA-GLUTAMYLTRANSFERASE INCREASED [None]
  - HEPATOCELLULAR DAMAGE [None]
  - HEPATOTOXICITY [None]
  - PRURITUS [None]
